FAERS Safety Report 5836437-3 (Version None)
Quarter: 2008Q3

REPORT INFORMATION
  Report Type: 
  Country: None (occurrence: None)
  Receive Date: 20080807
  Receipt Date: 20080729
  Transmission Date: 20090109
  Serious: Yes (Other)
  Sender: FDA-Public Use
  Company Number: PHHY2008CA10306

PATIENT

DRUGS (11)
  1. CO-DIOVAN T32564+ [Suspect]
     Indication: HYPERTENSION
     Dosage: 160/12.5 MG DAILY
     Dates: start: 20080605, end: 20080710
  2. ACLASTA [Suspect]
     Dosage: UNK
     Dates: start: 20080613
  3. SEROQUEL [Concomitant]
     Dosage: UNK
     Dates: end: 20080710
  4. ALTACE [Concomitant]
     Dosage: UNK
     Dates: end: 20080710
  5. EPIVAL [Concomitant]
     Dosage: UNK
     Dates: end: 20080710
  6. CALTRATE PLUS [Concomitant]
     Dosage: UNK
     Dates: end: 20080710
  7. FOLIC ACID [Concomitant]
     Dosage: UNK
     Dates: end: 20080710
  8. ACETAMINOPHEN [Concomitant]
     Dosage: UNK
     Dates: end: 20080710
  9. WELLBUTRIN SR [Concomitant]
     Dosage: UNK
     Dates: end: 20080710
  10. EXELON [Concomitant]
     Dosage: UNK
     Dates: end: 20080710
  11. MULTI-VITAMINS [Concomitant]
     Dosage: UNK
     Dates: end: 20080710

REACTIONS (10)
  - BLOOD CREATININE INCREASED [None]
  - BLOOD MAGNESIUM INCREASED [None]
  - BLOOD PHOSPHORUS INCREASED [None]
  - BLOOD PRESSURE INCREASED [None]
  - DECREASED APPETITE [None]
  - DRUG INEFFECTIVE [None]
  - GAIT DISTURBANCE [None]
  - GLOMERULAR FILTRATION RATE INCREASED [None]
  - LETHARGY [None]
  - PHARMACEUTICAL PRODUCT COMPLAINT [None]
